FAERS Safety Report 4368132-4 (Version None)
Quarter: 2004Q2

REPORT INFORMATION
  Report Type: 
  Country: None (occurrence: None)
  Receive Date: 20040602
  Receipt Date: 20030917
  Transmission Date: 20050107
  Serious: Yes (Disabling)
  Sender: FDA-Public Use
  Company Number: DE-ROCHE-347243

PATIENT
  Age: 55 Year
  Sex: Female
  Weight: 54 kg

DRUGS (7)
  1. PEG-INTERFERON ALFA 2A (RO 25-8310) [Suspect]
     Route: 058
     Dates: start: 20020820, end: 20030610
  2. REBETOL [Concomitant]
     Route: 048
     Dates: start: 20020820, end: 20030610
  3. PEPDUL [Concomitant]
     Route: 048
     Dates: start: 19960615
  4. L-THYROXIN 100 [Concomitant]
     Route: 048
     Dates: start: 19960615
  5. AMANTADINE HCL [Suspect]
     Route: 065
     Dates: start: 20021220, end: 20030616
  6. ASPIRIN [Concomitant]
     Route: 048
     Dates: start: 20020215
  7. AMIOXID [Suspect]
     Indication: DEPRESSION
     Dosage: REPORTED AS AMIOXID.
     Route: 048
     Dates: start: 20030522

REACTIONS (6)
  - ANGIOGRAM ABNORMAL [None]
  - GAMMA-GLUTAMYLTRANSFERASE ABNORMAL [None]
  - LOSS OF CONSCIOUSNESS [None]
  - NUCLEAR MAGNETIC RESONANCE IMAGING BRAIN ABNORMAL [None]
  - PUPIL FIXED [None]
  - SINUSITIS [None]
